FAERS Safety Report 13344020 (Version 1)
Quarter: 2017Q1

REPORT INFORMATION
  Report Type: Spontaneous
  Country: US (occurrence: US)
  Receive Date: 20170316
  Receipt Date: 20170316
  Transmission Date: 20170428
  Serious: No
  Sender: FDA-Public Use
  Company Number: US-ELI_LILLY_AND_COMPANY-US201608006059

PATIENT
  Sex: Female

DRUGS (2)
  1. CYMBALTA [Suspect]
     Active Substance: DULOXETINE HYDROCHLORIDE
     Indication: PRODUCT USED FOR UNKNOWN INDICATION
     Dosage: 60 MG, QD
     Route: 065
  2. CYMBALTA [Suspect]
     Active Substance: DULOXETINE HYDROCHLORIDE
     Dosage: 30 MG, QD, FOR 1 MONTH
     Route: 065

REACTIONS (12)
  - Affect lability [Recovering/Resolving]
  - Tinnitus [Recovering/Resolving]
  - Diarrhoea [Recovering/Resolving]
  - Confusional state [Unknown]
  - Drug withdrawal syndrome [Unknown]
  - Headache [Recovering/Resolving]
  - Sensory disturbance [Unknown]
  - Paraesthesia [Unknown]
  - Dysphoria [Unknown]
  - Injury [Unknown]
  - Irritability [Unknown]
  - Dizziness [Recovering/Resolving]
